FAERS Safety Report 9560031 (Version 2)
Quarter: 2014Q1

REPORT INFORMATION
  Report Type: Spontaneous
  Country: US (occurrence: US)
  Receive Date: 20130927
  Receipt Date: 20140320
  Transmission Date: 20141002
  Serious: Yes (Other)
  Sender: FDA-Public Use
  Company Number: US-PFIZER INC-2013277404

PATIENT
  Age: 44 Year
  Sex: Male
  Weight: 104.31 kg

DRUGS (7)
  1. CHANTIX [Suspect]
     Indication: SMOKING CESSATION THERAPY
     Dosage: 0.5 MG, 1X/DAY
     Route: 048
  2. CHANTIX [Suspect]
     Dosage: 0.5 MG, 1X/DAY
     Route: 048
  3. CHANTIX [Suspect]
     Dosage: 0.5 MG, 1X/DAY
     Route: 048
     Dates: start: 2012, end: 2012
  4. CHANTIX [Suspect]
     Dosage: UNK
     Route: 048
  5. CHANTIX [Suspect]
     Dosage: UNK
     Route: 048
  6. CHANTIX [Suspect]
     Dosage: UNK
     Route: 048
  7. CHANTIX [Suspect]
     Dosage: UNK
     Route: 048

REACTIONS (3)
  - Cardiac failure congestive [Unknown]
  - Chronic obstructive pulmonary disease [Unknown]
  - Abnormal dreams [Unknown]
